FAERS Safety Report 24065504 (Version 1)
Quarter: 2024Q3

REPORT INFORMATION
  Report Type: Spontaneous
  Country: DE (occurrence: DE)
  Receive Date: 20240709
  Receipt Date: 20240709
  Transmission Date: 20241017
  Serious: Yes (Other)
  Sender: MYLAN
  Company Number: DE-JNJFOC-20240656294

PATIENT
  Age: 6 Decade
  Sex: Male

DRUGS (2)
  1. LEVETIRACETAM [Interacting]
     Active Substance: LEVETIRACETAM
     Indication: Product used for unknown indication
     Dosage: UNK
     Route: 065
  2. ERLEADA [Interacting]
     Active Substance: APALUTAMIDE
     Indication: Prostate cancer
     Dosage: UNK
     Route: 048

REACTIONS (2)
  - Epilepsy [Recovering/Resolving]
  - Drug interaction [Unknown]
